FAERS Safety Report 5456810-5 (Version None)
Quarter: 2007Q3

REPORT INFORMATION
  Report Type: 
  Country: None (occurrence: None)
  Receive Date: 20070918
  Receipt Date: 20070430
  Transmission Date: 20080115
  Serious: No
  Sender: FDA-Public Use
  Company Number: US-ASTRAZENECA-2006UW26370

PATIENT
  Age: 48 Year
  Sex: Female
  Weight: 90.9 kg

DRUGS (1)
  1. SEROQUEL [Suspect]
     Route: 048
     Dates: end: 20020101

REACTIONS (2)
  - DIABETES MELLITUS [None]
  - NEUROPATHY [None]
